FAERS Safety Report 23492548 (Version 1)
Quarter: 2024Q1

REPORT INFORMATION
  Report Type: Report from Study
  Country: US (occurrence: US)
  Receive Date: 20240207
  Receipt Date: 20240207
  Transmission Date: 20240409
  Serious: No
  Sender: FDA-Public Use
  Company Number: US-ORG100014127-2023001004

PATIENT
  Age: 74 Year
  Sex: Male

DRUGS (4)
  1. LYSODREN [Suspect]
     Active Substance: MITOTANE
     Indication: Adrenal gland cancer
     Dosage: TAKE 02 TABLET BY MOUTH THREE TIMES  DAILY FOR 30 DAYS
     Route: 048
     Dates: start: 20230822, end: 20230906
  2. pantoprazole tablet 40mg [Concomitant]
     Indication: Product used for unknown indication
  3. prochlorperazine tablet 10mg [Concomitant]
     Indication: Product used for unknown indication
  4. dronabinol  2.5mg capsule [Concomitant]
     Indication: Product used for unknown indication

REACTIONS (4)
  - Ageusia [Not Recovered/Not Resolved]
  - Nausea [Not Recovered/Not Resolved]
  - Fatigue [Not Recovered/Not Resolved]
  - Decreased appetite [Not Recovered/Not Resolved]

NARRATIVE: CASE EVENT DATE: 20230825
